FAERS Safety Report 5225466-9 (Version None)
Quarter: 2007Q1

REPORT INFORMATION
  Report Type: 
  Country: None (occurrence: None)
  Receive Date: 20070131
  Receipt Date: 20070123
  Transmission Date: 20070707
  Serious: Yes (Other)
  Sender: FDA-Public Use
  Company Number: DE-PFIZER INC-2006148085

PATIENT
  Sex: Male
  Weight: 78 kg

DRUGS (4)
  1. ATORVASTATIN CALCIUM [Suspect]
     Indication: HYPERCHOLESTEROLAEMIA
     Dosage: DAILY DOSE:10MG-FREQ:DAY
     Route: 048
     Dates: start: 19980101, end: 20070118
  2. COAPROVEL [Suspect]
     Route: 048
  3. CONCOR [Concomitant]
     Route: 048
  4. MARCUMAR [Concomitant]
     Route: 048

REACTIONS (5)
  - B-CELL LYMPHOMA [None]
  - LEUKOPENIA [None]
  - MYELODYSPLASTIC SYNDROME [None]
  - RED BLOOD CELL COUNT DECREASED [None]
  - THROMBOCYTOPENIA [None]
